FAERS Safety Report 19911220 (Version 1)
Quarter: 2021Q3

REPORT INFORMATION
  Report Type: Spontaneous
  Country: US (occurrence: US)
  Receive Date: 20210930
  Receipt Date: 20210930
  Transmission Date: 20211014
  Serious: No
  Sender: FDA-Public Use
  Company Number: None

PATIENT

DRUGS (1)
  1. 7% SODIUM CHLORIDE INHALATION SOLUTION [Suspect]
     Active Substance: SODIUM CHLORIDE
     Route: 055

REACTIONS (4)
  - Product packaging confusion [None]
  - Product barcode issue [None]
  - Product outer packaging issue [None]
  - Physical product label issue [None]
